FAERS Safety Report 8459309-7 (Version None)
Quarter: 2012Q2

REPORT INFORMATION
  Report Type: 
  Country: None (occurrence: None)
  Receive Date: 20120622
  Receipt Date: 20120618
  Transmission Date: 20120825
  Serious: Yes (Life-Threatening, Hospitalization, Other)
  Sender: FDA-Public Use
  Company Number: FR-PFIZER INC-2012145736

PATIENT
  Age: 28 Year
  Sex: Female

DRUGS (5)
  1. EFFEXOR XR [Suspect]
     Indication: DEPRESSION
     Dosage: 75 MG, 2X/DAY
     Route: 048
     Dates: start: 20040101, end: 20120416
  2. OXAZEPAM [Concomitant]
     Dosage: 50/10, UNK
     Dates: start: 20090101
  3. REVIA [Concomitant]
     Dosage: UNK
     Dates: start: 20110301
  4. SOLIAN [Concomitant]
     Dosage: 400 MG, UNK
     Dates: start: 20080101
  5. LOXAPINE HCL [Concomitant]
     Dosage: 20 MG, UNK
     Dates: start: 20090101

REACTIONS (4)
  - ISCHAEMIC CARDIOMYOPATHY [None]
  - CONGESTIVE CARDIOMYOPATHY [None]
  - TRACHEOBRONCHITIS [None]
  - MITRAL VALVE INCOMPETENCE [None]
